FAERS Safety Report 25437406 (Version 1)
Quarter: 2025Q2

REPORT INFORMATION
  Report Type: Report from Study
  Country: US (occurrence: US)
  Receive Date: 20250616
  Receipt Date: 20250616
  Transmission Date: 20250717
  Serious: Yes (Death, Other)
  Sender: AMGEN
  Company Number: US-AMGEN-USASL2025090794

PATIENT
  Age: 58 Year
  Sex: Female

DRUGS (8)
  1. TARLATAMAB [Suspect]
     Active Substance: TARLATAMAB
     Indication: Small cell lung cancer
     Route: 040
     Dates: start: 20250402
  2. TARLATAMAB [Suspect]
     Active Substance: TARLATAMAB
     Route: 040
     Dates: start: 202504, end: 202504
  3. TARLATAMAB [Suspect]
     Active Substance: TARLATAMAB
     Route: 040
     Dates: start: 20250416, end: 20250416
  4. TARLATAMAB [Suspect]
     Active Substance: TARLATAMAB
     Dosage: 10 MILLIGRAM, Q2WK  (C2D1) (FOR 12 CYCLES)
     Route: 040
     Dates: start: 20250430, end: 20250430
  5. TARLATAMAB [Suspect]
     Active Substance: TARLATAMAB
     Dosage: 10 MILLIGRAM, Q2WK (C2D15)
     Route: 040
     Dates: start: 20250514
  6. TARLATAMAB [Suspect]
     Active Substance: TARLATAMAB
     Dosage: 10 MILLIGRAM, Q2WK (C2D15)
     Route: 040
     Dates: start: 20250514
  7. TARLATAMAB [Suspect]
     Active Substance: TARLATAMAB
     Route: 040
     Dates: start: 20250401, end: 20250514
  8. MORPHINE [Concomitant]
     Active Substance: MORPHINE

REACTIONS (7)
  - Death [Fatal]
  - Feeling hot [Unknown]
  - Pruritus [Unknown]
  - Back pain [Not Recovered/Not Resolved]
  - Nausea [Unknown]
  - Decreased appetite [Unknown]
  - Injection site haemorrhage [Unknown]

NARRATIVE: CASE EVENT DATE: 20250401
